FAERS Safety Report 5050860-9 (Version None)
Quarter: 2006Q3

REPORT INFORMATION
  Report Type: 
  Country: None (occurrence: None)
  Receive Date: 20060710
  Receipt Date: 20060627
  Transmission Date: 20061208
  Serious: Yes (Life-Threatening, Hospitalization, Other)
  Sender: FDA-Public Use
  Company Number: 2006079479

PATIENT
  Age: 68 Year
  Sex: Male
  Weight: 101 kg

DRUGS (13)
  1. SUTENT [Suspect]
     Indication: RENAL CELL CARCINOMA STAGE UNSPECIFIED
     Dosage: 50 MG (50 MG, DAILY - INTERVAL: CYCLIC), ORAL
     Route: 048
     Dates: start: 20060607
  2. AMLODIPINE [Concomitant]
  3. LISINOPRIL [Concomitant]
  4. GABAPENTIN [Concomitant]
  5. VALPROIC ACID [Concomitant]
  6. AMITRIPTYLINE HCL [Concomitant]
  7. HYDROCORTISONE TAB [Concomitant]
  8. FLUDROCORTISONE [Concomitant]
  9. TRAMADOL HCL [Concomitant]
  10. COD-LIVER OIL [Concomitant]
  11. MULTIVITAMIN [Concomitant]
  12. IRON [Concomitant]
  13. DIPROBASE CREAM (CETOMACROGOL, CETOSTEARYL ALCOHOL, PARAFFIN, LIQUID, [Concomitant]

REACTIONS (2)
  - MYOCARDIAL INFARCTION [None]
  - PYREXIA [None]
